FAERS Safety Report 17814040 (Version 1)
Quarter: 2020Q2

REPORT INFORMATION
  Report Type: Spontaneous
  Country: US (occurrence: US)
  Receive Date: 20200521
  Receipt Date: 20200521
  Transmission Date: 20200714
  Serious: No
  Sender: FDA-Public Use
  Company Number: US-AMPHASTAR PHARMACEUTICALS, INC.-2084088

PATIENT
  Age: 80 Year
  Sex: Male
  Weight: 78.18 kg

DRUGS (7)
  1. CORTROSYN [Suspect]
     Active Substance: COSYNTROPIN
     Indication: CORTISOL DECREASED
  2. PROTONIX [Concomitant]
     Active Substance: PANTOPRAZOLE SODIUM
  3. GABAPENTIN. [Concomitant]
     Active Substance: GABAPENTIN
  4. PEPCID [Concomitant]
     Active Substance: FAMOTIDINE
  5. MYRBETRIQ [Concomitant]
     Active Substance: MIRABEGRON
  6. IMIPRAMINE [Concomitant]
     Active Substance: IMIPRAMINE
  7. LYTO [Concomitant]

REACTIONS (1)
  - Drug ineffective [Unknown]

NARRATIVE: CASE EVENT DATE: 20191223
